FAERS Safety Report 19700479 (Version 2)
Quarter: 2023Q2

REPORT INFORMATION
  Report Type: Spontaneous
  Country: US (occurrence: US)
  Receive Date: 20210813
  Receipt Date: 20230504
  Transmission Date: 20230721
  Serious: Yes (Life-Threatening, Hospitalization)
  Sender: FDA-Public Use
  Company Number: US-MYLANLABS-2021M1050342

PATIENT
  Sex: Male

DRUGS (10)
  1. SERTRALINE [Suspect]
     Active Substance: SERTRALINE HYDROCHLORIDE
     Indication: Major depression
     Dosage: 1 DOSAGE FORM, QD
     Route: 064
  2. TRAZODONE [Suspect]
     Active Substance: TRAZODONE HYDROCHLORIDE
     Indication: Major depression
     Dosage: 1 DOSAGE FORM, QD EXTENDED-RELEASE TABLET
     Route: 064
  3. VENLAFAXINE [Suspect]
     Active Substance: VENLAFAXINE HYDROCHLORIDE
     Indication: Major depression
     Dosage: 1 DOSAGE FORM, QD EXTENDED-RELEASE TABLET
     Route: 064
  4. BUSPIRONE [Suspect]
     Active Substance: BUSPIRONE HYDROCHLORIDE
     Indication: Major depression
     Dosage: 3 DOSAGE FORM, QDEXTENDED-RELEASE TABLET; THREE TIMES DAILY
     Route: 064
  5. CLONIDINE [Suspect]
     Active Substance: CLONIDINE
     Indication: Drug withdrawal syndrome neonatal
     Dosage: 1 MICROGRAM/KILOGRAM, Q3H
     Route: 065
  6. CLONIDINE [Suspect]
     Active Substance: CLONIDINE
     Dosage: 4 MICROGRAM/KILOGRAM, Q3H
     Route: 065
  7. CLONIDINE [Suspect]
     Active Substance: CLONIDINE
     Dosage: 3 MICROGRAM/KILOGRAM, Q3H
     Route: 065
  8. CLONIDINE [Suspect]
     Active Substance: CLONIDINE
     Dosage: 1.5 MICROGRAM/KILOGRAM, Q8H
     Route: 065
  9. MIDAZOLAM [Suspect]
     Active Substance: MIDAZOLAM
     Indication: Drug withdrawal syndrome neonatal
     Dosage: TEST DOSE
     Route: 065
  10. LORAZEPAM [Suspect]
     Active Substance: LORAZEPAM
     Indication: Drug withdrawal syndrome neonatal
     Dosage: 0.05 MILLIGRAM/KILOGRAM, Q6H ADJUVANT THERAPY INITIATED ON DAY OF LIFE 5
     Route: 065

REACTIONS (5)
  - Foetal exposure during pregnancy [Recovered/Resolved]
  - Toxicity to various agents [Recovering/Resolving]
  - Drug withdrawal syndrome neonatal [Recovering/Resolving]
  - Bradycardia neonatal [Recovering/Resolving]
  - Off label use [Unknown]
